FAERS Safety Report 14447127 (Version 2)
Quarter: 2018Q2

REPORT INFORMATION
  Report Type: Spontaneous
  Country: NZ (occurrence: NZ)
  Receive Date: 20180126
  Receipt Date: 20180614
  Transmission Date: 20180711
  Serious: Yes (Life-Threatening, Hospitalization, Disabling, Other)
  Sender: FDA-Public Use
  Company Number: NZ-GUERBET-NZ-20180005

PATIENT
  Age: 52 Year
  Sex: Female
  Weight: 77 kg

DRUGS (3)
  1. GLUCAGON. [Suspect]
     Active Substance: GLUCAGON
     Indication: NUCLEAR MAGNETIC RESONANCE IMAGING
     Route: 042
     Dates: start: 20180115, end: 20180115
  2. DOTAREM [Suspect]
     Active Substance: GADOTERATE MEGLUMINE
     Indication: NUCLEAR MAGNETIC RESONANCE IMAGING
     Route: 042
     Dates: start: 20180115, end: 20180115
  3. VOLUMEN [Suspect]
     Active Substance: BARIUM SULFATE
     Indication: NUCLEAR MAGNETIC RESONANCE IMAGING
     Route: 048
     Dates: start: 20180115, end: 20180115

REACTIONS (5)
  - Vomiting [Recovered/Resolved]
  - Chest discomfort [Recovered/Resolved]
  - Nausea [Recovered/Resolved]
  - Coma [Recovered/Resolved]
  - Tachycardia [Recovered/Resolved]

NARRATIVE: CASE EVENT DATE: 20180115
